FAERS Safety Report 6423994-1 (Version None)
Quarter: 2009Q4

REPORT INFORMATION
  Report Type: 
  Country: None (occurrence: None)
  Receive Date: 20091102
  Receipt Date: 20091029
  Transmission Date: 20100525
  Serious: Yes (Death, Hospitalization, Other)
  Sender: FDA-Public Use
  Company Number: PHHY2009DK46539

PATIENT
  Age: 42 Year
  Sex: Male

DRUGS (6)
  1. CYCLOSPORINE [Suspect]
     Indication: STEM CELL TRANSPLANT
  2. METHOTREXATE [Suspect]
     Indication: STEM CELL TRANSPLANT
  3. IRRADIATION [Concomitant]
  4. CYCLOPHOSPHAMIDE [Concomitant]
  5. TRIMETHOPRIM [Concomitant]
  6. ACYCLOVIR [Concomitant]

REACTIONS (16)
  - ACUTE GRAFT VERSUS HOST DISEASE IN SKIN [None]
  - BRONCHOPNEUMONIA [None]
  - CORONA VIRUS INFECTION [None]
  - COUGH [None]
  - DIFFUSE ALVEOLAR DAMAGE [None]
  - IDIOPATHIC PNEUMONIA SYNDROME [None]
  - IMMUNOGLOBULINS DECREASED [None]
  - INFLUENZA LIKE ILLNESS [None]
  - LUNG INFILTRATION [None]
  - LYMPHOPENIA [None]
  - MUSCULOSKELETAL CHEST PAIN [None]
  - PULMONARY OEDEMA [None]
  - PYREXIA [None]
  - RASH MACULO-PAPULAR [None]
  - RESPIRATORY FAILURE [None]
  - RESPIRATORY TRACT INFLAMMATION [None]
